FAERS Safety Report 22119628 (Version 1)
Quarter: 2023Q1

REPORT INFORMATION
  Report Type: Spontaneous
  Country: US (occurrence: US)
  Receive Date: 20230321
  Receipt Date: 20230321
  Transmission Date: 20230418
  Serious: No
  Sender: FDA-Public Use
  Company Number: US-AMGEN-USASP2023046964

PATIENT
  Age: 52 Year
  Sex: Female

DRUGS (5)
  1. RITUXIMAB [Suspect]
     Active Substance: RITUXIMAB
     Indication: Thrombotic thrombocytopenic purpura
     Dosage: UNK, QWK
     Route: 065
  2. RITUXIMAB [Suspect]
     Active Substance: RITUXIMAB
     Indication: Off label use
  3. VINCRISTINE [Concomitant]
     Active Substance: VINCRISTINE
     Indication: Thrombotic thrombocytopenic purpura
     Dosage: UNK
     Route: 042
  4. HEPARIN [Concomitant]
     Active Substance: HEPARIN SODIUM
     Indication: Thrombotic thrombocytopenic purpura
     Dosage: UNK
     Route: 042
  5. WARFARIN [Concomitant]
     Active Substance: WARFARIN
     Indication: Thrombotic thrombocytopenic purpura
     Dosage: UNK
     Route: 065

REACTIONS (1)
  - Off label use [Unknown]
